FAERS Safety Report 25020869 (Version 2)
Quarter: 2025Q3

REPORT INFORMATION
  Report Type: Report from Study
  Country: US (occurrence: US)
  Receive Date: 20250227
  Receipt Date: 20250828
  Transmission Date: 20251021
  Serious: Yes (Other)
  Sender: ABBVIE
  Company Number: US-ABBVIE-6135520

PATIENT
  Age: 82 Year
  Sex: Female
  Weight: 73.935 kg

DRUGS (1)
  1. SKYRIZI [Suspect]
     Active Substance: RISANKIZUMAB-RZAA
     Indication: Crohn^s disease
     Dosage: FORM STRENGTH: 360 MILLIGRAM
     Route: 058
     Dates: start: 20231025

REACTIONS (4)
  - Macular degeneration [Recovering/Resolving]
  - Sinus congestion [Recovered/Resolved]
  - COVID-19 [Not Recovered/Not Resolved]
  - Amnesia [Unknown]

NARRATIVE: CASE EVENT DATE: 20231101
